FAERS Safety Report 11437724 (Version 6)
Quarter: 2015Q4

REPORT INFORMATION
  Report Type: Spontaneous
  Country: US (occurrence: US)
  Receive Date: 20150831
  Receipt Date: 20151105
  Transmission Date: 20160304
  Serious: Yes (Other)
  Sender: FDA-Public Use
  Company Number: US-GLAXOSMITHKLINE-US2015GSK088935

PATIENT
  Sex: Male
  Weight: 96.6 kg

DRUGS (16)
  1. ADVAIR HFA [Suspect]
     Active Substance: FLUTICASONE PROPIONATE\SALMETEROL XINAFOATE
     Indication: CHRONIC OBSTRUCTIVE PULMONARY DISEASE
     Dosage: 500/50 MCG, 2 PUFF(S), QD (DAILY)
     Route: 065
     Dates: start: 20150525
  2. ADVAIR HFA [Suspect]
     Active Substance: FLUTICASONE PROPIONATE\SALMETEROL XINAFOATE
     Dosage: 500/50 MCG, 1 PUFF, INHALED BID
     Route: 055
     Dates: start: 20150423, end: 20150430
  3. GABAPENTIN. [Concomitant]
     Active Substance: GABAPENTIN
  4. NIFEDIPINE ER [Concomitant]
     Active Substance: NIFEDIPINE
  5. RAPAMUNE [Concomitant]
     Active Substance: SIROLIMUS
  6. ALLOPURINOL. [Concomitant]
     Active Substance: ALLOPURINOL
  7. TORSEMIDE. [Concomitant]
     Active Substance: TORSEMIDE
  8. ADVAIR HFA [Suspect]
     Active Substance: FLUTICASONE PROPIONATE\SALMETEROL XINAFOATE
     Dosage: 500/50 MCG, 1 PUFF, INHALED BID
     Route: 055
  9. HYDROCODONE/ACETAMINOPHEN [Concomitant]
     Active Substance: ACETAMINOPHEN\HYDROCODONE
  10. ADVAIR HFA [Suspect]
     Active Substance: FLUTICASONE PROPIONATE\SALMETEROL XINAFOATE
     Dosage: 250/50 MCG, 1 PUFF, BID
     Route: 055
  11. LOSARTAN. [Concomitant]
     Active Substance: LOSARTAN
  12. PRAVASTATIN [Concomitant]
     Active Substance: PRAVASTATIN\PRAVASTATIN SODIUM
  13. PROGRAF [Concomitant]
     Active Substance: TACROLIMUS\TACROLIMUS ANHYDROUS
  14. XANAX [Concomitant]
     Active Substance: ALPRAZOLAM
  15. LANTUS [Concomitant]
     Active Substance: INSULIN GLARGINE
  16. NOVOLOG [Concomitant]
     Active Substance: INSULIN ASPART

REACTIONS (7)
  - Drug effect increased [Unknown]
  - Treatment noncompliance [Unknown]
  - Incorrect dose administered [Unknown]
  - Chest discomfort [Recovered/Resolved]
  - Chest pain [Recovered/Resolved]
  - Intentional product use issue [Unknown]
  - Respiratory tract infection [Recovered/Resolved]

NARRATIVE: CASE EVENT DATE: 2014
